FAERS Safety Report 4726973-5 (Version None)
Quarter: 2005Q3

REPORT INFORMATION
  Report Type: 
  Country: None (occurrence: None)
  Receive Date: 20050728
  Receipt Date: 20050720
  Transmission Date: 20060218
  Serious: Yes (Hospitalization)
  Sender: FDA-Public Use
  Company Number: JP-BRISTOL-MYERS SQUIBB COMPANY-13045430

PATIENT
  Age: 54 Year
  Sex: Male

DRUGS (1)
  1. MITOMYCIN [Suspect]
     Indication: GLAUCOMA
     Route: 031

REACTIONS (1)
  - EYE INFECTION [None]
